FAERS Safety Report 14772726 (Version 1)
Quarter: 2018Q2

REPORT INFORMATION
  Report Type: Spontaneous
  Country: IN (occurrence: IN)
  Receive Date: 20180418
  Receipt Date: 20180418
  Transmission Date: 20180711
  Serious: Yes (Other)
  Sender: FDA-Public Use
  Company Number: IN-HETERO CORPORATE-HET2018IN00326

PATIENT
  Age: 47 Year
  Sex: Female

DRUGS (5)
  1. DIVALPROATE [Concomitant]
     Active Substance: DIVALPROEX SODIUM
     Indication: BIPOLAR I DISORDER
     Dosage: 1000 MG
     Route: 065
  2. TRIHEXYPHENIDYL                    /00002602/ [Concomitant]
     Indication: PROPHYLAXIS
     Dosage: 2 MG
     Route: 065
  3. RISPERIDONE. [Suspect]
     Active Substance: RISPERIDONE
     Indication: BIPOLAR I DISORDER
     Dosage: 8 MG
     Route: 065
  4. ARIPIPRAZOLE. [Suspect]
     Active Substance: ARIPIPRAZOLE
     Indication: BIPOLAR I DISORDER
     Dosage: UNK
     Route: 065
  5. PROMETHAZINE                       /00033002/ [Concomitant]
     Active Substance: PROMETHAZINE HYDROCHLORIDE
     Indication: BIPOLAR I DISORDER
     Dosage: 25 MG, BID
     Route: 065

REACTIONS (1)
  - Rabbit syndrome [Recovered/Resolved]
